FAERS Safety Report 5114363-5 (Version None)
Quarter: 2006Q3

REPORT INFORMATION
  Report Type: 
  Country: None (occurrence: None)
  Receive Date: 20060731
  Receipt Date: 20060606
  Transmission Date: 20061208
  Serious: No
  Sender: FDA-Public Use
  Company Number: 2006PV015118

PATIENT
  Age: 55 Year
  Sex: Female
  Weight: 86.1834 kg

DRUGS (3)
  1. BYETTA [Suspect]
     Indication: DRUG USE FOR UNKNOWN INDICATION
     Dosage: 5 MCG;BID;SC
     Route: 058
     Dates: start: 20060501, end: 20060524
  2. AMBIEN [Concomitant]
  3. VOLTAREN [Concomitant]

REACTIONS (1)
  - HYPOAESTHESIA [None]
